FAERS Safety Report 13697135 (Version 1)
Quarter: 2017Q2

REPORT INFORMATION
  Report Type: Spontaneous
  Country: US (occurrence: US)
  Receive Date: 20170628
  Receipt Date: 20170628
  Transmission Date: 20170830
  Serious: No
  Sender: FDA-Public Use
  Company Number: US-BAYER-2017-124174

PATIENT
  Age: 73 Year
  Sex: Female

DRUGS (1)
  1. CLARITIN [Suspect]
     Active Substance: LORATADINE
     Indication: NASAL CONGESTION
     Dosage: 1 DF, UNK
     Route: 048
     Dates: end: 20170624

REACTIONS (3)
  - Product use in unapproved indication [Unknown]
  - Somnolence [Unknown]
  - Adverse event [Unknown]

NARRATIVE: CASE EVENT DATE: 20170624
